FAERS Safety Report 9076351 (Version 1)
Quarter: 2013Q1

REPORT INFORMATION
  Report Type: Report from Study
  Country: US (occurrence: US)
  Receive Date: 20130129
  Receipt Date: 20130129
  Transmission Date: 20140127
  Serious: No
  Sender: FDA-Public Use
  Company Number: US-ABBOTT-12P-163-0944958-00

PATIENT
  Age: 44 Year
  Sex: Male

DRUGS (5)
  1. HUMIRA 40 MG/0.8 ML PEN [Suspect]
     Indication: PSORIATIC ARTHROPATHY
     Dates: start: 2010, end: 201201
  2. HUMIRA 40 MG/0.8 ML PEN [Suspect]
     Dates: start: 201203
  3. ZOLOFT [Concomitant]
     Indication: BIPOLAR DISORDER
     Dosage: DAILY
  4. TOPIRAMATE [Concomitant]
     Indication: BIPOLAR DISORDER
  5. AMBIEN [Concomitant]
     Indication: INSOMNIA
     Dosage: DAILY

REACTIONS (2)
  - Psoriasis [Not Recovered/Not Resolved]
  - Arthralgia [Unknown]
